FAERS Safety Report 9423142 (Version 5)
Quarter: 2013Q4

REPORT INFORMATION
  Report Type: Report from Study
  Country: DE (occurrence: DE)
  Receive Date: 20130726
  Receipt Date: 20131101
  Transmission Date: 20140711
  Serious: Yes (Hospitalization)
  Sender: FDA-Public Use
  Company Number: DE-BRISTOL-MYERS SQUIBB COMPANY-19114453

PATIENT
  Age: 75 Year
  Sex: Male
  Weight: 62 kg

DRUGS (14)
  1. IPILIMUMAB [Suspect]
     Indication: GASTROOESOPHAGEAL CANCER
     Dosage: 16APR2013-18JUN2013
     Route: 042
     Dates: start: 20130412, end: 20130618
  2. CAPECITABINE [Suspect]
     Indication: GASTROOESOPHAGEAL CANCER
  3. OXALIPLATIN [Suspect]
     Indication: GASTROOESOPHAGEAL CANCER
  4. FUCIDINE CREAM [Concomitant]
     Dosage: TOPICAL
     Dates: start: 20130409
  5. POVIDONE-IODINE [Concomitant]
     Dates: start: 20130412
  6. DEXPANTHENOL [Concomitant]
     Dosage: CREAM
     Dates: start: 20130507
  7. CELEBREX [Concomitant]
     Dates: start: 20130710
  8. FENISTIL [Concomitant]
     Dates: start: 20130702
  9. PREDNISONE [Concomitant]
     Dates: start: 20130712
  10. INSULIN [Concomitant]
     Indication: BLOOD GLUCOSE
  11. CELECOXIB [Concomitant]
  12. SOLU-DECORTIN-H [Concomitant]
     Route: 042
  13. PANTOZOL [Concomitant]
     Route: 048
  14. INSULIN [Concomitant]

REACTIONS (1)
  - Myalgia [Recovered/Resolved]
